FAERS Safety Report 8397813 (Version 4)
Quarter: 2012Q4

REPORT INFORMATION
  Report Type: Report from Study
  Country: US (occurrence: US)
  Receive Date: 20120209
  Receipt Date: 20120913
  Transmission Date: 20130627
  Serious: Yes (Hospitalization, Other)
  Sender: FDA-Public Use
  Company Number: US-ROCHE-1036995

PATIENT
  Age: 57 Year
  Sex: Male
  Weight: 71 kg

DRUGS (2)
  1. TARCEVA [Suspect]
     Indication: ADENOCARCINOMA PANCREAS
     Route: 048
     Dates: start: 20120109, end: 20120124
  2. VISMODEGIB [Suspect]
     Indication: ADENOCARCINOMA PANCREAS
     Route: 048
     Dates: start: 20120109, end: 20120124

REACTIONS (10)
  - Incorrect dose administered [Unknown]
  - Urosepsis [Recovering/Resolving]
  - Renal neoplasm [Unknown]
  - Urinary tract infection [Recovered/Resolved]
  - Perinephric abscess [Unknown]
  - Gastrointestinal haemorrhage [Unknown]
  - Neoplasm malignant [Unknown]
  - Obstruction gastric [Unknown]
  - Small intestinal obstruction [Unknown]
  - Anaemia [Unknown]
